FAERS Safety Report 19710669 (Version 1)
Quarter: 2021Q3

REPORT INFORMATION
  Report Type: Report from Study
  Country: None (occurrence: US)
  Receive Date: 20210817
  Receipt Date: 20210817
  Transmission Date: 20211014
  Serious: Yes (Hospitalization, Other)
  Sender: FDA-Public Use
  Company Number: US-ABBVIE-21K-163-4039936-00

PATIENT
  Age: 72 Year
  Sex: Female
  Weight: 44.95 kg

DRUGS (8)
  1. CREON [Suspect]
     Active Substance: PANCRELIPASE AMYLASE\PANCRELIPASE LIPASE\PANCRELIPASE PROTEASE
     Indication: PANCREATIC CARCINOMA
     Dosage: 2?3 CAPSULES WITH MEALS, 1?2 CAPSULES WITH SNACK
     Route: 048
     Dates: start: 202009, end: 202102
  2. LASIX [Concomitant]
     Active Substance: FUROSEMIDE
     Indication: DIURETIC THERAPY
  3. GABAPENTIN. [Concomitant]
     Active Substance: GABAPENTIN
     Indication: NEUROPATHY PERIPHERAL
  4. MODERNA COVID?19 VACCINE [Concomitant]
     Active Substance: CX-024414
     Route: 030
     Dates: start: 20210316, end: 20210316
  5. CHOLESTYRAMINE. [Concomitant]
     Active Substance: CHOLESTYRAMINE
     Indication: BILE ACID MALABSORPTION
  6. MODERNA COVID?19 VACCINE [Concomitant]
     Active Substance: CX-024414
     Indication: COVID-19 IMMUNISATION
     Route: 030
     Dates: start: 20210216, end: 20210216
  7. PANTOPRAZOLE [Concomitant]
     Active Substance: PANTOPRAZOLE
     Indication: GASTROOESOPHAGEAL REFLUX DISEASE
  8. ENOXAPARIN [Concomitant]
     Active Substance: ENOXAPARIN
     Indication: ANTICOAGULANT THERAPY

REACTIONS (9)
  - Haemorrhage [Recovered/Resolved]
  - Peripheral swelling [Not Recovered/Not Resolved]
  - Haemoglobin decreased [Recovered/Resolved]
  - Blood test abnormal [Recovered/Resolved]
  - Hepatic vein thrombosis [Recovered/Resolved]
  - Thrombosis [Recovered/Resolved]
  - Blood disorder [Recovered/Resolved]
  - Platelet count decreased [Recovered/Resolved]
  - Procedural complication [Recovered/Resolved]

NARRATIVE: CASE EVENT DATE: 202104
